FAERS Safety Report 11784398 (Version 2)
Quarter: 2015Q4

REPORT INFORMATION
  Report Type: Spontaneous
  Country: JP (occurrence: JP)
  Receive Date: 20151129
  Receipt Date: 20151210
  Transmission Date: 20160305
  Serious: Yes (Death, Other)
  Sender: FDA-Public Use
  Company Number: JP-MYLANLABS-2015M1036901

PATIENT

DRUGS (5)
  1. DEXAMETHASONE. [Concomitant]
     Active Substance: DEXAMETHASONE
     Indication: GASTRIC CANCER
     Dosage: UNK, CYCLE
     Route: 042
  2. PLAVIX [Concomitant]
     Active Substance: CLOPIDOGREL BISULFATE
     Indication: PRODUCT USED FOR UNKNOWN INDICATION
     Route: 048
  3. DIPHENHYDRAMINE HYDROCHLORIDE. [Concomitant]
     Active Substance: DIPHENHYDRAMINE HYDROCHLORIDE
     Indication: GASTRIC CANCER
     Route: 048
  4. FAMOTIDINE. [Concomitant]
     Active Substance: FAMOTIDINE
     Indication: GASTRIC CANCER
     Dosage: UNK, CYCLE
     Route: 042
  5. PACLITAXEL. [Suspect]
     Active Substance: PACLITAXEL
     Indication: PRODUCT USED FOR UNKNOWN INDICATION
     Dosage: UNK, CYCLE
     Route: 041
     Dates: end: 20151014

REACTIONS (3)
  - Ileus [Fatal]
  - Disseminated intravascular coagulation [Fatal]
  - Circulatory collapse [Fatal]

NARRATIVE: CASE EVENT DATE: 20151021
